FAERS Safety Report 17558471 (Version 4)
Quarter: 2023Q2

REPORT INFORMATION
  Report Type: Spontaneous
  Country: CA (occurrence: CA)
  Receive Date: 20200319
  Receipt Date: 20230627
  Transmission Date: 20230721
  Serious: Yes (Other)
  Sender: FDA-Public Use
  Company Number: CA-SAMSUNG BIOEPIS-SB-2020-08947

PATIENT
  Age: 54 Year
  Sex: Male
  Weight: 115 kg

DRUGS (7)
  1. INFLIXIMAB [Suspect]
     Active Substance: INFLIXIMAB
     Indication: Crohn^s disease
     Route: 042
  2. INFLIXIMAB [Suspect]
     Active Substance: INFLIXIMAB
     Route: 042
  3. INFLIXIMAB [Suspect]
     Active Substance: INFLIXIMAB
     Route: 042
  4. INFLIXIMAB [Suspect]
     Active Substance: INFLIXIMAB
     Route: 042
  5. INFLIXIMAB [Suspect]
     Active Substance: INFLIXIMAB
     Route: 042
  6. INFLIXIMAB [Suspect]
     Active Substance: INFLIXIMAB
     Route: 042
  7. METOPROLOL [Concomitant]
     Active Substance: METOPROLOL
     Indication: Supraventricular tachycardia
     Route: 065

REACTIONS (8)
  - Supraventricular tachycardia [Recovered/Resolved]
  - Arthralgia [Recovered/Resolved]
  - Condition aggravated [Recovered/Resolved]
  - Weight fluctuation [Recovered/Resolved]
  - Therapeutic response shortened [Recovered/Resolved]
  - Incorrect dose administered [Recovered/Resolved]
  - Intentional product use issue [Recovered/Resolved]
  - Off label use [Recovered/Resolved]
